FAERS Safety Report 23914590 (Version 8)
Quarter: 2025Q4

REPORT INFORMATION
  Report Type: Report from Study
  Country: CN (occurrence: CN)
  Receive Date: 20240529
  Receipt Date: 20251008
  Transmission Date: 20260118
  Serious: Yes (Hospitalization, Other)
  Sender: RANBAXY
  Company Number: CN-SUN PHARMACEUTICAL INDUSTRIES LTD-2023R1-418427

PATIENT
  Age: 74 Year
  Sex: Female
  Weight: 43.7 kg

DRUGS (8)
  1. SONIDEGIB [Suspect]
     Active Substance: SONIDEGIB
     Indication: Basal cell carcinoma
     Dosage: 200 MILLIGRAM, QD
     Route: 048
     Dates: start: 20230814, end: 20231204
  2. SONIDEGIB [Suspect]
     Active Substance: SONIDEGIB
     Dosage: 200 MILLIGRAM, QD
     Route: 048
     Dates: start: 20240103, end: 20240129
  3. SONIDEGIB [Suspect]
     Active Substance: SONIDEGIB
     Dosage: 200 MILLIGRAM, QD
     Route: 048
     Dates: start: 20240103, end: 20240423
  4. FERROUS SUCCINATE [Concomitant]
     Active Substance: FERROUS SUCCINATE
     Indication: Iron deficiency anaemia
     Dosage: 0.2 GRAM, BID
     Route: 048
     Dates: start: 20231204, end: 20240326
  5. FERROUS SUCCINATE [Concomitant]
     Active Substance: FERROUS SUCCINATE
     Dosage: 0.1 GRAM, TID
     Route: 048
     Dates: end: 20240527
  6. OMEPRAZOLE [Concomitant]
     Active Substance: OMEPRAZOLE
     Indication: Chronic gastritis
     Dosage: 40 MILLIGRAM, QD
     Route: 041
     Dates: start: 20240430, end: 20240504
  7. Jian wei xiao shi [Concomitant]
     Indication: Hyperchlorhydria
     Dosage: 10 MILLIGRAM, BID
     Route: 048
     Dates: start: 20240430, end: 20240509
  8. POTASSIUM CHLORIDE [Concomitant]
     Active Substance: POTASSIUM CHLORIDE
     Indication: Prophylaxis
     Dosage: 5 MILLILITER, QD
     Route: 041
     Dates: start: 20240430, end: 20240504

REACTIONS (15)
  - Iron deficiency anaemia [Recovering/Resolving]
  - Pneumonia [Not Recovered/Not Resolved]
  - Colon cancer [Not Recovered/Not Resolved]
  - Faecal occult blood positive [Not Recovered/Not Resolved]
  - Myoglobin blood increased [Recovered/Resolved]
  - Vomiting [Recovered/Resolved]
  - Decreased appetite [Recovered/Resolved]
  - Blood creatine phosphokinase increased [Unknown]
  - Blood albumin decreased [Unknown]
  - Alopecia [Recovered/Resolved]
  - Hypoalbuminaemia [Not Recovered/Not Resolved]
  - Hypoproteinaemia [Not Recovered/Not Resolved]
  - Vomiting [Unknown]
  - Chronic gastritis [Unknown]
  - Muscle spasms [Unknown]

NARRATIVE: CASE EVENT DATE: 20231010
